FAERS Safety Report 6820902-6 (Version None)
Quarter: 2010Q3

REPORT INFORMATION
  Report Type: 
  Country: None (occurrence: None)
  Receive Date: 20100707
  Receipt Date: 20070718
  Transmission Date: 20110219
  Serious: No
  Sender: FDA-Public Use
  Company Number: US-PFIZER INC-2007059458

PATIENT
  Age: 19 Year
  Sex: Male

DRUGS (1)
  1. ZOLOFT [Suspect]
     Dates: start: 20050101, end: 20070601

REACTIONS (1)
  - ERECTILE DYSFUNCTION [None]
